FAERS Safety Report 4755426-3 (Version None)
Quarter: 2005Q3

REPORT INFORMATION
  Report Type: 
  Country: None (occurrence: None)
  Receive Date: 20050826
  Receipt Date: 20050826
  Transmission Date: 20060218
  Serious: Yes (Hospitalization)
  Sender: FDA-Public Use
  Company Number: None

PATIENT
  Age: 78 Year
  Sex: Female
  Weight: 46.2669 kg

DRUGS (12)
  1. HEPARIN [Suspect]
     Dosage: 5000UNITS   BID SQ
     Route: 058
  2. CLOPIDOGREL  75MG [Suspect]
     Dosage: 75MG  DAILY PO
     Route: 048
     Dates: start: 20020303, end: 20050627
  3. ACETAMINOPHEN [Concomitant]
  4. ALTEPLASE [Concomitant]
  5. . [Concomitant]
  6. DIALYVITE [Concomitant]
  7. DORZOLAMIDE/TIMOLOL [Concomitant]
  8. HEPARIN [Concomitant]
  9. HYDRALAZINE [Concomitant]
  10. HYDROCODONE BITARTRATE + ACETAMINOPHEN [Concomitant]
  11. LISINOPRIL [Concomitant]
  12. METOPROLOL [Concomitant]

REACTIONS (5)
  - ACTIVATED PARTIAL THROMBOPLASTIN TIME PROLONGED [None]
  - BACTERAEMIA [None]
  - ENTEROCOCCAL INFECTION [None]
  - HAEMODIALYSIS [None]
  - HAEMORRHAGE [None]
